FAERS Safety Report 6878082-7 (Version None)
Quarter: 2010Q2

REPORT INFORMATION
  Report Type: 
  Country: None (occurrence: None)
  Receive Date: 20100616
  Receipt Date: 20100308
  Transmission Date: 20101027
  Serious: No
  Sender: FDA-Public Use
  Company Number: DSA_41779_2009

PATIENT
  Sex: Female

DRUGS (4)
  1. XENAZINE [Suspect]
     Indication: HUNTINGTON'S CHOREA
     Dosage: (12.5 MG BID ORAL), ( 12.5 MG TID ORAL)
     Route: 048
     Dates: start: 20090908
  2. XENAZINE [Suspect]
     Indication: TARDIVE DYSKINESIA
     Dosage: (12.5 MG BID ORAL), ( 12.5 MG TID ORAL)
     Route: 048
     Dates: start: 20090908
  3. XENAZINE [Suspect]
     Indication: HUNTINGTON'S CHOREA
     Dosage: (12.5 MG BID ORAL), ( 12.5 MG TID ORAL)
     Route: 048
     Dates: start: 20100226
  4. XENAZINE [Suspect]
     Indication: TARDIVE DYSKINESIA
     Dosage: (12.5 MG BID ORAL), ( 12.5 MG TID ORAL)
     Route: 048
     Dates: start: 20100226

REACTIONS (6)
  - ASTHENIA [None]
  - DEPRESSION [None]
  - DIZZINESS [None]
  - DYSPHAGIA [None]
  - PALPITATIONS [None]
  - SOMNOLENCE [None]
